FAERS Safety Report 4638602-X (Version None)
Quarter: 2005Q2

REPORT INFORMATION
  Report Type: 
  Country: None (occurrence: None)
  Receive Date: 20050325
  Receipt Date: 20041214
  Transmission Date: 20051028
  Serious: No
  Sender: FDA-Public Use
  Company Number: USA041184227

PATIENT
  Age: 72 Year
  Sex: Female

DRUGS (2)
  1. FORTEO [Suspect]
     Indication: OSTEOPOROSIS
     Dosage: 20 UG DAY
     Dates: start: 20040901
  2. ZOLOFT [Concomitant]

REACTIONS (4)
  - BACK PAIN [None]
  - CRYING [None]
  - DEPRESSED MOOD [None]
  - INCISION SITE COMPLICATION [None]
